FAERS Safety Report 18503831 (Version 2)
Quarter: 2021Q1

REPORT INFORMATION
  Report Type: Spontaneous
  Country: BR (occurrence: BR)
  Receive Date: 20201113
  Receipt Date: 20210114
  Transmission Date: 20210419
  Serious: Yes (Other)
  Sender: FDA-Public Use
  Company Number: BR-TAKEDA-2020TUS049513

PATIENT
  Sex: Female
  Weight: 92 kg

DRUGS (7)
  1. LEVOTHYROXINE. [Concomitant]
     Active Substance: LEVOTHYROXINE
     Indication: THYROID DISORDER
     Dosage: 50 MILLIGRAM, QD
     Route: 048
     Dates: start: 2010
  2. CALCIUM [Concomitant]
     Active Substance: CALCIUM
     Indication: MINERAL SUPPLEMENTATION
     Dosage: 500 MILLIGRAM, QD
     Route: 048
     Dates: start: 2017
  3. MESACOL [MESALAZINE] [Suspect]
     Active Substance: MESALAMINE
     Indication: COLITIS ULCERATIVE
     Dosage: 250 MILLIGRAM, BID
     Route: 054
     Dates: start: 2007
  4. D VITAMIN NATURE MADE [Concomitant]
     Indication: VITAMIN SUPPLEMENTATION
     Dosage: UNK UNK, QD
     Route: 048
     Dates: start: 2017
  5. NEOVITE MAX [Concomitant]
     Indication: MACULOPATHY
     Dosage: UNK
     Route: 048
     Dates: start: 2019
  6. MESACOL MMX [Suspect]
     Active Substance: MESALAMINE
     Indication: COLITIS ULCERATIVE
     Dosage: 1200 MILLIGRAM, TID
     Route: 048
     Dates: start: 2004
  7. PURINETHOL [Concomitant]
     Active Substance: MERCAPTOPURINE
     Indication: COLITIS ULCERATIVE
     Dosage: 50 MILLIGRAM, BID
     Route: 048
     Dates: start: 2007

REACTIONS (1)
  - Drug dependence [Unknown]
